FAERS Safety Report 5929241-9 (Version None)
Quarter: 2008Q4

REPORT INFORMATION
  Report Type: 
  Country: None (occurrence: None)
  Receive Date: 20081023
  Receipt Date: 20081023
  Transmission Date: 20090506
  Serious: No
  Sender: FDA-Public Use
  Company Number: None

PATIENT
  Age: 50 Year
  Sex: Male
  Weight: 108.8633 kg

DRUGS (2)
  1. CIALIS [Suspect]
     Indication: ERECTILE DYSFUNCTION
     Dosage: 10 MG. AS NEEDED PO
     Route: 048
     Dates: start: 20061101, end: 20070328
  2. VIAGRA [Concomitant]

REACTIONS (4)
  - BALANCE DISORDER [None]
  - DEAFNESS UNILATERAL [None]
  - DIZZINESS [None]
  - TINNITUS [None]
